FAERS Safety Report 10427237 (Version 1)
Quarter: 2014Q3

REPORT INFORMATION
  Report Type: Spontaneous
  Country: US (occurrence: US)
  Receive Date: 20140903
  Receipt Date: 20140903
  Transmission Date: 20150326
  Serious: No
  Sender: FDA-Public Use
  Company Number: US-BAYER-2014-129015

PATIENT
  Age: 69 Year
  Sex: Male

DRUGS (1)
  1. GADAVIST [Suspect]
     Active Substance: GADOBUTROL
     Indication: NUCLEAR MAGNETIC RESONANCE IMAGING
     Dosage: UNK
     Dates: start: 20140731

REACTIONS (4)
  - Glomerular filtration rate decreased [None]
  - Blood calcium increased [None]
  - Glomerular filtration rate increased [None]
  - Blood creatinine increased [None]

NARRATIVE: CASE EVENT DATE: 20140815
